FAERS Safety Report 4732931-7 (Version None)
Quarter: 2005Q3

REPORT INFORMATION
  Report Type: 
  Country: None (occurrence: None)
  Receive Date: 20050803
  Receipt Date: 20050601
  Transmission Date: 20060218
  Serious: No
  Sender: FDA-Public Use
  Company Number: US-GLAXOSMITHKLINE-A0560782A

PATIENT
  Age: 62 Year
  Sex: Female

DRUGS (6)
  1. AVANDAMET [Suspect]
     Dosage: 1TAB TWICE PER DAY
     Route: 048
  2. LIPITOR [Concomitant]
  3. ATENOLOL [Concomitant]
  4. BENICAR [Concomitant]
     Route: 065
  5. ECOTRIN [Concomitant]
  6. ZETIA [Concomitant]

REACTIONS (1)
  - BLOOD GLUCOSE INCREASED [None]
